FAERS Safety Report 6696147-X (Version None)
Quarter: 2010Q2

REPORT INFORMATION
  Report Type: 
  Country: None (occurrence: None)
  Receive Date: 20100426
  Receipt Date: 20100412
  Transmission Date: 20101027
  Serious: Yes (Other)
  Sender: FDA-Public Use
  Company Number: US-ASTRAZENECA-2009SE13351

PATIENT
  Age: 13205 Day
  Sex: Female

DRUGS (18)
  1. SEROQUEL [Suspect]
     Indication: HALLUCINATION, AUDITORY
     Route: 048
     Dates: start: 20011107
  2. SEROQUEL [Suspect]
     Indication: INSOMNIA
     Route: 048
     Dates: start: 20011107
  3. SEROQUEL [Suspect]
     Indication: ANXIETY
     Route: 048
     Dates: start: 20011107
  4. SEROQUEL [Suspect]
     Route: 048
     Dates: start: 20071129
  5. SEROQUEL [Suspect]
     Route: 048
     Dates: start: 20071129
  6. SEROQUEL [Suspect]
     Route: 048
     Dates: start: 20071129
  7. THIOTHIXENE [Concomitant]
     Indication: HALLUCINATION, AUDITORY
     Route: 048
     Dates: start: 20011117
  8. THIOTHIXENE [Concomitant]
     Indication: INSOMNIA
     Route: 048
     Dates: start: 20011117
  9. ZYPREXA [Concomitant]
  10. RISPERDAL [Concomitant]
     Route: 048
     Dates: start: 20011128
  11. ABILIFY [Concomitant]
  12. TOPAMAX [Concomitant]
  13. TRAZODONE HCL [Concomitant]
     Route: 048
     Dates: start: 20020227
  14. BENZTROPINE MES [Concomitant]
     Route: 048
     Dates: start: 20011117
  15. CLONAZEPAM [Concomitant]
     Route: 048
     Dates: start: 20011117
  16. TRIFLUOPERAZINE HCL [Concomitant]
     Route: 048
     Dates: start: 20071129
  17. TRIHEXYPHENIDYL HCL [Concomitant]
     Route: 048
     Dates: start: 20071018
  18. LISINOPRIL [Concomitant]
     Route: 048
     Dates: start: 20071129

REACTIONS (2)
  - DIABETES MELLITUS [None]
  - PERIPHERAL SENSORY NEUROPATHY [None]
